FAERS Safety Report 9551902 (Version 2)
Quarter: 2013Q4

REPORT INFORMATION
  Report Type: Spontaneous
  Country: US (occurrence: US)
  Receive Date: 20130925
  Receipt Date: 20131112
  Transmission Date: 20140711
  Serious: Yes (Hospitalization)
  Sender: FDA-Public Use
  Company Number: US-JNJFOC-20130911280

PATIENT
  Age: 56 Year
  Sex: Male

DRUGS (18)
  1. XARELTO [Suspect]
     Indication: CEREBROVASCULAR ACCIDENT PROPHYLAXIS
     Route: 048
  2. XARELTO [Suspect]
     Indication: ATRIAL FIBRILLATION
     Route: 048
  3. ULTRAM [Concomitant]
     Dosage: AS NEEDED
     Route: 048
  4. ASPIRIN [Concomitant]
     Route: 048
  5. B-COMPLEX PLUS FOLIC ACID [Concomitant]
     Route: 048
  6. SYMBICORT [Concomitant]
     Dosage: 160-4.5 MCG/ACT, 2 PUFFS INTO LUNGS TWO TIMES DAILY.
     Route: 065
  7. COREG [Concomitant]
     Dosage: WITH MEALS
     Route: 048
  8. COLCHICINE [Concomitant]
     Route: 048
  9. LANOXIN [Concomitant]
     Route: 048
  10. TRIGLIDE [Concomitant]
     Route: 048
  11. FISH OIL [Concomitant]
     Route: 048
  12. VITAMIN D3 [Concomitant]
     Route: 048
  13. LASIX [Concomitant]
     Route: 048
  14. ATROVENT HFA [Concomitant]
     Dosage: 17 MCG/ACT 2 PUFFS 4 TIMES DAILY
     Route: 065
  15. PRINIVIL [Concomitant]
     Route: 048
  16. ZOCOR [Concomitant]
     Route: 048
  17. ALBUTEROL [Concomitant]
     Dosage: 2 PUFFS INTO LUNGS 4 TIMES A DAY
     Route: 065
  18. ULORIC [Concomitant]
     Route: 048

REACTIONS (5)
  - Coagulopathy [Unknown]
  - International normalised ratio increased [Unknown]
  - Cardiac failure congestive [Recovering/Resolving]
  - Hypotension [Recovered/Resolved]
  - Atrial fibrillation [Recovered/Resolved]
